FAERS Safety Report 6486928-X (Version None)
Quarter: 2009Q4

REPORT INFORMATION
  Report Type: 
  Country: None (occurrence: None)
  Receive Date: 20091210
  Receipt Date: 20091202
  Transmission Date: 20100525
  Serious: Yes (Hospitalization, Other)
  Sender: FDA-Public Use
  Company Number: CHPA2009US22735

PATIENT
  Sex: Female
  Weight: 61.224 kg

DRUGS (3)
  1. BENEFIBER UNKNOWN (NCH) [Suspect]
     Indication: INTESTINAL FUNCTIONAL DISORDER
     Dosage: 1 DF, QD
     Route: 048
     Dates: start: 20070101, end: 20090401
  2. BENEFIBER UNKNOWN (NCH) [Suspect]
     Indication: CONSTIPATION
  3. DRUG THERAPY NOS [Concomitant]

REACTIONS (4)
  - BLOOD PRESSURE INCREASED [None]
  - DRUG INEFFECTIVE FOR UNAPPROVED INDICATION [None]
  - INTESTINAL OBSTRUCTION [None]
  - PAIN [None]
